FAERS Safety Report 4524353-9 (Version None)
Quarter: 2004Q4

REPORT INFORMATION
  Report Type: 
  Country: None (occurrence: None)
  Receive Date: 20041119
  Receipt Date: 20040927
  Transmission Date: 20050328
  Serious: Yes (Other)
  Sender: FDA-Public Use
  Company Number: PHEH2004US10365

PATIENT
  Age: 44 Year
  Sex: Female

DRUGS (8)
  1. ZELNORM [Suspect]
     Indication: IRRITABLE BOWEL SYNDROME
     Dosage: 6 MG, BID, ORAL
     Route: 048
     Dates: start: 20040827, end: 20040927
  2. PROZAC [Concomitant]
  3. ASPIRIN [Concomitant]
  4. MULTIPLE VITAMINS (VITAMIN B NOS, RETINOL) [Concomitant]
  5. ADVIL [Concomitant]
  6. ALBUTEROL [Concomitant]
  7. PULMICORT [Concomitant]
  8. SUDAFED S.A. [Concomitant]

REACTIONS (5)
  - DERMATITIS EXFOLIATIVE [None]
  - DRUG ERUPTION [None]
  - ERYTHEMA [None]
  - RASH PAPULAR [None]
  - SKIN BURNING SENSATION [None]
